FAERS Safety Report 6978482-0 (Version None)
Quarter: 2010Q3

REPORT INFORMATION
  Report Type: 
  Country: None (occurrence: None)
  Receive Date: 20100913
  Receipt Date: 20100824
  Transmission Date: 20110219
  Serious: Yes (Hospitalization, Other)
  Sender: FDA-Public Use
  Company Number: BR-BAYER-200816390LA

PATIENT
  Age: 30 Year
  Sex: Female

DRUGS (10)
  1. BETAFERON [Suspect]
     Indication: RELAPSING-REMITTING MULTIPLE SCLEROSIS
     Dosage: BETAJECT
     Route: 058
     Dates: start: 20100101
  2. BETAFERON [Suspect]
     Dosage: BETAJECT
     Route: 058
     Dates: start: 20080206
  3. BETAFERON [Suspect]
     Dosage: BETAJECT
     Route: 058
     Dates: start: 20080101
  4. SOLU-MEDROL [Suspect]
     Indication: MULTIPLE SCLEROSIS RELAPSE
     Route: 042
     Dates: start: 20090701
  5. SOLU-MEDROL [Suspect]
     Route: 042
     Dates: start: 20090301
  6. SOLU-MEDROL [Suspect]
     Route: 042
     Dates: start: 20080501
  7. SOLU-MEDROL [Suspect]
     Route: 042
     Dates: start: 20080901
  8. DIANE 35 [Concomitant]
     Indication: POLYCYSTIC OVARIES
     Route: 048
  9. AMITRIPTYLINE HCL [Concomitant]
     Indication: SEDATIVE THERAPY
     Dosage: TOTAL DAILY DOSE: 25 MG  UNIT DOSE: 25 MG
     Route: 048
     Dates: start: 20080723, end: 20080723
  10. METFORMIN HCL [Concomitant]
     Indication: POLYCYSTIC OVARIES
     Dosage: 2 TABLETS
     Route: 048
     Dates: start: 20090801

REACTIONS (24)
  - ANXIETY [None]
  - BALANCE DISORDER [None]
  - BLOOD PRESSURE INCREASED [None]
  - BONE PAIN [None]
  - CONVULSION [None]
  - COORDINATION ABNORMAL [None]
  - DEPRESSED MOOD [None]
  - DIPLOPIA [None]
  - DYSPHAGIA [None]
  - FLUID RETENTION [None]
  - HEADACHE [None]
  - INJECTION SITE DISCOLOURATION [None]
  - INJECTION SITE PAIN [None]
  - IRRITABILITY [None]
  - MENINGITIS VIRAL [None]
  - MULTIPLE SCLEROSIS [None]
  - MULTIPLE SCLEROSIS RELAPSE [None]
  - NERVOUSNESS [None]
  - PARAESTHESIA [None]
  - PYREXIA [None]
  - SENSORY DISTURBANCE [None]
  - URINARY INCONTINENCE [None]
  - WEIGHT DECREASED [None]
  - WEIGHT INCREASED [None]
